FAERS Safety Report 15642924 (Version 1)
Quarter: 2018Q4

REPORT INFORMATION
  Report Type: Spontaneous
  Country: US (occurrence: US)
  Receive Date: 20181114
  Receipt Date: 20181114
  Transmission Date: 20190205
  Serious: No
  Sender: FDA-Public Use
  Company Number: None

PATIENT
  Age: 49 Year
  Sex: Female

DRUGS (1)
  1. COSENTYX [Suspect]
     Active Substance: SECUKINUMAB
     Dosage: DATE OF USE GIVEN IS LATER THAN DATE OF EVENT - OMITTED DAY
     Route: 058
     Dates: start: 201811

REACTIONS (1)
  - Laryngeal stenosis [None]

NARRATIVE: CASE EVENT DATE: 20181113
